FAERS Safety Report 7474756-8 (Version None)
Quarter: 2011Q2

REPORT INFORMATION
  Report Type: 
  Country: None (occurrence: None)
  Receive Date: 20110505
  Receipt Date: 20110421
  Transmission Date: 20111010
  Serious: Yes (Other)
  Sender: FDA-Public Use
  Company Number: 029827

PATIENT
  Sex: Female
  Weight: 84.5 kg

DRUGS (13)
  1. PREDNISONE [Concomitant]
  2. NORTRIPTYLINE HCL [Concomitant]
  3. HYDROXYZINE [Concomitant]
  4. ADALAT [Concomitant]
  5. ATACAND [Concomitant]
  6. ACCOLATE [Concomitant]
  7. PLAVIX [Concomitant]
  8. CIMZIA [Suspect]
     Indication: RHEUMATOID ARTHRITIS
     Dosage: 400 MG 1X2 WEEKS, ON HOLD AS OF 28-MAR-2011, SUBCUTANEOUS
     Route: 058
     Dates: start: 20110323, end: 20110301
  9. RANITIDINE [Concomitant]
  10. CLONIDINE [Concomitant]
  11. MTX [Concomitant]
  12. GEN-FENOFIBRATE MICRO [Concomitant]
  13. CETIRIZINE HCL [Concomitant]

REACTIONS (7)
  - BLOOD PRESSURE SYSTOLIC INCREASED [None]
  - PARAESTHESIA ORAL [None]
  - INFLUENZA [None]
  - PNEUMONIA [None]
  - SENSORY DISTURBANCE [None]
  - HYPOAESTHESIA ORAL [None]
  - DYSGEUSIA [None]
